FAERS Safety Report 5055446-8 (Version None)
Quarter: 2006Q3

REPORT INFORMATION
  Report Type: 
  Country: None (occurrence: None)
  Receive Date: 20060714
  Receipt Date: 20060626
  Transmission Date: 20061208
  Serious: Yes (Other)
  Sender: FDA-Public Use
  Company Number: SE200606005468

PATIENT
  Age: 29 Year
  Sex: Male

DRUGS (1)
  1. CYMBALTA [Suspect]
     Indication: PANIC DISORDER
     Dosage: 30 + 60MG, DAILY (1/D), ORAL
     Route: 048
     Dates: start: 20041201

REACTIONS (1)
  - CARDIAC FIBRILLATION [None]
